FAERS Safety Report 7622602-1 (Version None)
Quarter: 2011Q3

REPORT INFORMATION
  Report Type: 
  Country: None (occurrence: None)
  Receive Date: 20110712
  Receipt Date: 20110517
  Transmission Date: 20111222
  Serious: Yes (Other)
  Sender: FDA-Public Use
  Company Number: CIP11000301

PATIENT
  Age: 80 Year
  Sex: Female

DRUGS (15)
  1. CALCIUM (CALCIUM) [Concomitant]
  2. TANAKAN /01003103/ (GINKGO BILOBA EXTRACT) [Concomitant]
  3. ACETAMINOPHEN [Concomitant]
  4. FIXICAL (CALCIUM CARBONATE) [Concomitant]
  5. SERMION /00396401/ (NICERGOLINE) [Concomitant]
  6. PLAVIX [Concomitant]
  7. VASTAREL (TRIMETAZIDINE HYDROCHLORIDE) [Concomitant]
  8. FURADANTIN [Suspect]
     Indication: URINARY TRACT INFECTION
     Dosage: 2 DOSAGE FORMS WEEKLY, ORAL, 1 DF DAILY, ORAL, 2 DF WEEKLY, ORAL, 1 DF, EVERY 2DAY
     Route: 048
     Dates: start: 20061101, end: 20061201
  9. FURADANTIN [Suspect]
     Indication: URINARY TRACT INFECTION
     Dosage: 2 DOSAGE FORMS WEEKLY, ORAL, 1 DF DAILY, ORAL, 2 DF WEEKLY, ORAL, 1 DF, EVERY 2DAY
     Route: 048
     Dates: start: 20100501, end: 20110210
  10. FURADANTIN [Suspect]
     Indication: URINARY TRACT INFECTION
     Dosage: 2 DOSAGE FORMS WEEKLY, ORAL, 1 DF DAILY, ORAL, 2 DF WEEKLY, ORAL, 1 DF, EVERY 2DAY
     Route: 048
     Dates: start: 20081001, end: 20081101
  11. FURADANTIN [Suspect]
     Indication: URINARY TRACT INFECTION
     Dosage: 2 DOSAGE FORMS WEEKLY, ORAL, 1 DF DAILY, ORAL, 2 DF WEEKLY, ORAL, 1 DF, EVERY 2DAY
     Route: 048
     Dates: start: 20080101, end: 20100501
  12. FURADANTIN [Suspect]
     Indication: URINARY TRACT INFECTION
     Dosage: 2 DOSAGE FORMS WEEKLY, ORAL, 1 DF DAILY, ORAL, 2 DF WEEKLY, ORAL, 1 DF, EVERY 2DAY
     Route: 048
     Dates: end: 20110301
  13. FURADANTIN [Suspect]
     Indication: URINARY TRACT INFECTION
     Dosage: 2 DOSAGE FORMS WEEKLY, ORAL, 1 DF DAILY, ORAL, 2 DF WEEKLY, ORAL, 1 DF, EVERY 2DAY
     Route: 048
     Dates: start: 20070601, end: 20070701
  14. FURADANTIN [Suspect]
     Indication: URINARY TRACT INFECTION
     Dosage: 2 DOSAGE FORMS WEEKLY, ORAL, 1 DF DAILY, ORAL, 2 DF WEEKLY, ORAL, 1 DF, EVERY 2DAY
     Route: 048
     Dates: start: 20070701, end: 20080101
  15. PROTELOS /01556702/ (STRONTIUM RANELATE) [Concomitant]

REACTIONS (7)
  - LUNG INFILTRATION [None]
  - PLEURAL FIBROSIS [None]
  - COUGH [None]
  - IDIOPATHIC THROMBOCYTOPENIC PURPURA [None]
  - PULMONARY FIBROSIS [None]
  - CONTUSION [None]
  - PRURITUS [None]
